FAERS Safety Report 4624613-7 (Version None)
Quarter: 2005Q1

REPORT INFORMATION
  Report Type: 
  Country: None (occurrence: None)
  Receive Date: 20050107
  Receipt Date: 20041123
  Transmission Date: 20050727
  Serious: No
  Sender: FDA-Public Use
  Company Number: 235761K04USA

PATIENT
  Age: 25 Year
  Sex: Female

DRUGS (1)
  1. REBIF [Suspect]
     Indication: MULTIPLE SCLEROSIS
     Dosage: 8.8 MCG, 3 IN 1 WEEKS  SUBCUTANEOUS
     Route: 058
     Dates: start: 20041117, end: 20041101

REACTIONS (13)
  - DIZZINESS [None]
  - DYSAESTHESIA [None]
  - HOT FLUSH [None]
  - HYPERHIDROSIS [None]
  - INJECTION SITE DISCOLOURATION [None]
  - INJECTION SITE INFLAMMATION [None]
  - INJECTION SITE IRRITATION [None]
  - INJECTION SITE PAIN [None]
  - INJECTION SITE PRURITUS [None]
  - INJECTION SITE REACTION [None]
  - INJECTION SITE SWELLING [None]
  - NAUSEA [None]
  - TREMOR [None]
